FAERS Safety Report 8624572-6 (Version None)
Quarter: 2012Q3

REPORT INFORMATION
  Report Type: 
  Country: None (occurrence: None)
  Receive Date: 20120810
  Receipt Date: 20120801
  Transmission Date: 20120928
  Serious: Yes (Disabling, Other)
  Sender: FDA-Public Use
  Company Number: AUR-APL-2012-03345

PATIENT
  Age: 70 Year
  Sex: Female
  Weight: 70 kg

DRUGS (11)
  1. ASPIRIN [Concomitant]
  2. METOCLOPRAMIDE [Concomitant]
  3. ALENDRONATE SODIUM [Concomitant]
  4. ZAPAIN (PANADEINE CO) [Concomitant]
  5. RANITIDINE HYDROCHLORIDE [Suspect]
     Indication: DYSPEPSIA
     Dosage: 300 MG (150 MG, 2 IN 1 D), ORAL
     Route: 048
     Dates: start: 20110916, end: 20120530
  6. RAMIPRIL [Concomitant]
  7. ADCAL-D3 (LEKOVIT CA) [Concomitant]
  8. FOLIC ACID [Concomitant]
  9. ROSUVASTATIN [Concomitant]
  10. BISOPROLOL FUMARATE [Concomitant]
  11. CALCICHEW D3 (LEKOVIT CA) [Concomitant]

REACTIONS (3)
  - DEPRESSION [None]
  - ANXIETY [None]
  - HALLUCINATION, VISUAL [None]
